FAERS Safety Report 10120384 (Version 1)
Quarter: 2014Q2

REPORT INFORMATION
  Report Type: Spontaneous
  Country: US (occurrence: US)
  Receive Date: 20140425
  Receipt Date: 20140425
  Transmission Date: 20141212
  Serious: No
  Sender: FDA-Public Use
  Company Number: US-PFIZER INC-2014113128

PATIENT
  Sex: Female

DRUGS (2)
  1. PREPARATION H MEDICATED WIPES [Suspect]
     Indication: HAEMORRHOIDS
     Dosage: UNK
  2. CORTISONE [Suspect]
     Indication: RASH
     Dosage: UNK

REACTIONS (5)
  - Rash [Unknown]
  - Dry skin [Unknown]
  - Skin fissures [Unknown]
  - Pain [Unknown]
  - Drug ineffective [Unknown]
